FAERS Safety Report 10751809 (Version 1)
Quarter: 2015Q1

REPORT INFORMATION
  Report Type: Spontaneous
  Country: US (occurrence: None)
  Receive Date: 20150129
  Receipt Date: 20150129
  Transmission Date: 20150721
  Serious: No
  Sender: FDA-Public Use
  Company Number: None

PATIENT
  Age: 63 Year
  Sex: Female
  Weight: 102 kg

DRUGS (4)
  1. OXALIPLATIN TEVA 5 MG/ML [Suspect]
     Active Substance: OXALIPLATIN
     Indication: COLORECTAL CANCER
     Dosage: 85 MG/M2 EVERY 14 DAYS
     Route: 042
  2. 5-FLUOROURACIL [Concomitant]
     Active Substance: FLUOROURACIL
  3. PANITUMUMAB [Concomitant]
     Active Substance: PANITUMUMAB
  4. LEUCOVORIN [Concomitant]
     Active Substance: LEUCOVORIN

REACTIONS (4)
  - Medication error [None]
  - Platelet count decreased [None]
  - Incorrect dose administered [None]
  - Drug prescribing error [None]

NARRATIVE: CASE EVENT DATE: 20150121
